FAERS Safety Report 8775517 (Version 7)
Quarter: 2014Q2

REPORT INFORMATION
  Report Type: Report from Study
  Country: BR (occurrence: BR)
  Receive Date: 20120911
  Receipt Date: 20140627
  Transmission Date: 20141212
  Serious: Yes (Hospitalization, Other)
  Sender: FDA-Public Use
  Company Number: BR-ROCHE-796138

PATIENT
  Age: 63 Year
  Sex: Female
  Weight: 65 kg

DRUGS (10)
  1. MABTHERA [Suspect]
     Indication: RHEUMATOID ARTHRITIS
     Dosage: FREQUENCY: 2 INFUSION PER 6 MONTHS?DATE OF LAST DOSE PRIOR TO SAE : 20/FEB/2014
     Route: 042
  2. MABTHERA [Suspect]
     Dosage: LAST DOSE WAS RECEIVED ON APR/2013.
     Route: 042
  3. HUMIRA [Suspect]
     Indication: PRODUCT USED FOR UNKNOWN INDICATION
     Route: 065
  4. CALCORT [Concomitant]
     Route: 065
  5. METHOTREXATE [Concomitant]
     Route: 065
  6. METHOTREXATE [Concomitant]
     Route: 065
  7. EVISTA [Concomitant]
     Route: 065
  8. CELEBRA [Concomitant]
     Indication: PAIN
     Dosage: FREQUENCY:WHEN NEEDED
     Route: 065
  9. CALCIO D [Concomitant]
  10. ZETIA [Concomitant]
     Indication: BLOOD CHOLESTEROL ABNORMAL

REACTIONS (17)
  - Osteoarthritis [Not Recovered/Not Resolved]
  - Urinary tract infection [Recovered/Resolved]
  - Bladder dilatation [Recovered/Resolved]
  - Osteoarthritis [Unknown]
  - Arthropathy [Unknown]
  - Hip fracture [Not Recovered/Not Resolved]
  - Device dislocation [Not Recovered/Not Resolved]
  - Arthropathy [Unknown]
  - Pain [Not Recovered/Not Resolved]
  - Arthralgia [Unknown]
  - Headache [Recovered/Resolved]
  - Dyspepsia [Recovered/Resolved]
  - Skin disorder [Unknown]
  - Arthralgia [Not Recovered/Not Resolved]
  - Nail disorder [Not Recovered/Not Resolved]
  - Arthropathy [Unknown]
  - Bone cyst [Unknown]
